FAERS Safety Report 13794269 (Version 4)
Quarter: 2018Q1

REPORT INFORMATION
  Report Type: Spontaneous
  Country: US (occurrence: US)
  Receive Date: 20170726
  Receipt Date: 20180111
  Transmission Date: 20180508
  Serious: Yes (Death)
  Sender: FDA-Public Use
  Company Number: US-PFIZER INC-2017318313

PATIENT
  Age: 63 Year
  Sex: Female
  Weight: 68.27 kg

DRUGS (6)
  1. PAROXETINE. [Concomitant]
     Active Substance: PAROXETINE
     Indication: DRUG THERAPY
     Dosage: 2 MG, ONCE DAILY
  2. IBRANCE [Suspect]
     Active Substance: PALBOCICLIB
     Dosage: 100 MG, UNK
     Dates: start: 2017, end: 201708
  3. TRAZODONE [Concomitant]
     Active Substance: TRAZODONE HYDROCHLORIDE
     Indication: ILL-DEFINED DISORDER
     Dosage: 50 MG, ONCE DAILY
  4. IBRANCE [Suspect]
     Active Substance: PALBOCICLIB
     Indication: BREAST CANCER METASTATIC
     Dosage: 125 MG, DAILY
     Route: 048
     Dates: start: 2017, end: 2017
  5. LISINOPRIL. [Concomitant]
     Active Substance: LISINOPRIL
     Indication: BLOOD PRESSURE ABNORMAL
     Dosage: 10 MG, ONCE DAILY
  6. AFINITOR [Concomitant]
     Active Substance: EVEROLIMUS
     Dosage: UNK

REACTIONS (4)
  - Oral mucosal blistering [Unknown]
  - Malaise [Unknown]
  - White blood cell count decreased [Unknown]
  - Neoplasm progression [Fatal]
